FAERS Safety Report 6381487-4 (Version None)
Quarter: 2009Q3

REPORT INFORMATION
  Report Type: 
  Country: None (occurrence: None)
  Receive Date: 20090924
  Receipt Date: 20090917
  Transmission Date: 20100115
  Serious: Yes (Other)
  Sender: FDA-Public Use
  Company Number: 09US003661

PATIENT
  Age: 42 Year
  Sex: Male
  Weight: 77.1 kg

DRUGS (2)
  1. ACETAMINOPHEN [Suspect]
     Indication: BACK PAIN
     Dosage: 1500-2000 MG 5X/DAY, ORAL; 1500-2000 MG TID, ORAL
     Route: 048
     Dates: start: 20081201, end: 20090909
  2. ACETAMINOPHEN [Suspect]
     Indication: BACK PAIN
     Dosage: 1500-2000 MG 5X/DAY, ORAL; 1500-2000 MG TID, ORAL
     Route: 048
     Dates: start: 20090909

REACTIONS (5)
  - DECREASED APPETITE [None]
  - DRUG INEFFECTIVE [None]
  - ECONOMIC PROBLEM [None]
  - EPISTAXIS [None]
  - OVERDOSE [None]
